FAERS Safety Report 23342937 (Version 1)
Quarter: 2023Q4

REPORT INFORMATION
  Report Type: Spontaneous
  Country: GB (occurrence: GB)
  Receive Date: 20231227
  Receipt Date: 20231227
  Transmission Date: 20240109
  Serious: Yes (Life-Threatening, Other)
  Sender: FDA-Public Use
  Company Number: GB-MHRA-MED-202309281655131340-QTWKJ

PATIENT
  Age: 61 Year
  Sex: Male
  Weight: 102 kg

DRUGS (2)
  1. PREGABALIN [Suspect]
     Active Substance: PREGABALIN
     Indication: Product used for unknown indication
     Dosage: 150 MILLIGRAM, BID
     Route: 065
     Dates: end: 20170818
  2. MORPHINE [Concomitant]
     Active Substance: MORPHINE
     Indication: Spondylitis
     Dosage: UNK
     Route: 065
     Dates: start: 20180308

REACTIONS (2)
  - Respiratory depression [Not Recovered/Not Resolved]
  - Sleep apnoea syndrome [Unknown]
